FAERS Safety Report 4666594-6 (Version None)
Quarter: 2005Q2

REPORT INFORMATION
  Report Type: 
  Country: None (occurrence: None)
  Receive Date: 20050518
  Receipt Date: 20050505
  Transmission Date: 20051028
  Serious: Yes (Hospitalization)
  Sender: FDA-Public Use
  Company Number: 2005BI002094

PATIENT
  Age: 53 Year
  Sex: Female

DRUGS (8)
  1. AVONEX [Suspect]
     Indication: MULTIPLE SCLEROSIS
     Dosage: 30 UG; QW; IM
     Route: 030
     Dates: start: 19970401, end: 19980101
  2. AVONEX [Suspect]
     Indication: MULTIPLE SCLEROSIS
     Dosage: 30 UG; QW; IM
     Route: 030
     Dates: start: 20000101
  3. NEXIUM [Concomitant]
  4. SINEMET [Concomitant]
  5. ANTIVERT [Concomitant]
  6. PROVIGIL [Concomitant]
  7. DITROPAN [Concomitant]
  8. MACROBID [Concomitant]

REACTIONS (2)
  - CYSTITIS [None]
  - URINARY TRACT INFECTION [None]
